FAERS Safety Report 9360631 (Version 1)
Quarter: 2013Q2

REPORT INFORMATION
  Report Type: Spontaneous
  Country: GB (occurrence: GB)
  Receive Date: 20130621
  Receipt Date: 20130621
  Transmission Date: 20140414
  Serious: Yes (Other)
  Sender: FDA-Public Use
  Company Number: GB-UCBSA-088806

PATIENT
  Age: 65 Year
  Sex: Female
  Weight: 70 kg

DRUGS (4)
  1. CIMZIA [Suspect]
     Indication: RHEUMATOID ARTHRITIS
     Route: 058
     Dates: start: 20130419, end: 20130508
  2. AMLODIPINE [Concomitant]
  3. HYDROXYCHLOROQUINE [Concomitant]
     Route: 048
  4. THYROXINE [Concomitant]

REACTIONS (2)
  - Dermatitis psoriasiform [Recovering/Resolving]
  - Blister [Recovering/Resolving]
